FAERS Safety Report 6692074-2 (Version None)
Quarter: 2010Q2

REPORT INFORMATION
  Report Type: 
  Country: None (occurrence: None)
  Receive Date: 20100422
  Receipt Date: 20100416
  Transmission Date: 20101027
  Serious: Yes (Hospitalization)
  Sender: FDA-Public Use
  Company Number: FR-BRISTOL-MYERS SQUIBB COMPANY-15067101

PATIENT
  Age: 41 Year
  Sex: Female

DRUGS (3)
  1. COUMADIN [Suspect]
     Dosage: 10 DF=10 TABLETS
     Dates: start: 20100310
  2. THERALENE [Suspect]
     Dosage: 5 DF=5 TABLETS
     Dates: start: 20100310
  3. TERCIAN [Suspect]
     Dosage: 5 DF=5 TABLETS
     Dates: start: 20100310

REACTIONS (4)
  - INTENTIONAL OVERDOSE [None]
  - SOMNOLENCE [None]
  - SUICIDE ATTEMPT [None]
  - VESSEL PUNCTURE SITE HAEMORRHAGE [None]
